FAERS Safety Report 13795248 (Version 4)
Quarter: 2018Q2

REPORT INFORMATION
  Report Type: Not Available
  Country: US (occurrence: US)
  Receive Date: 20170726
  Receipt Date: 20180430
  Transmission Date: 20180711
  Serious: Yes (Other)
  Sender: FDA-Public Use
  Company Number: US-NEUROCRINE BIOSCIENCES INC.-2017NBI00265

PATIENT
  Sex: Male
  Weight: 99.88 kg

DRUGS (6)
  1. INGREZZA [Suspect]
     Active Substance: VALBENAZINE
     Dates: start: 2017, end: 201803
  2. LITHIUM. [Concomitant]
     Active Substance: LITHIUM
     Indication: MOOD ALTERED
  3. INGREZZA [Suspect]
     Active Substance: VALBENAZINE
     Route: 048
     Dates: start: 201705, end: 2017
  4. INGREZZA [Suspect]
     Active Substance: VALBENAZINE
     Indication: TARDIVE DYSKINESIA
     Route: 048
     Dates: start: 20170518, end: 201705
  5. LAMICTAL [Concomitant]
     Active Substance: LAMOTRIGINE
     Indication: MOOD ALTERED
  6. CLONEX [Concomitant]
     Indication: RESTLESS LEGS SYNDROME

REACTIONS (6)
  - Dizziness [Recovered/Resolved]
  - Mobility decreased [Recovered/Resolved]
  - Hypotension [Recovered/Resolved]
  - Somnolence [Recovered/Resolved]
  - Fall [Recovered/Resolved]
  - Syncope [Recovered/Resolved]

NARRATIVE: CASE EVENT DATE: 2017
